FAERS Safety Report 22398510 (Version 1)
Quarter: 2023Q2

REPORT INFORMATION
  Report Type: Other
  Country: IR (occurrence: IR)
  Receive Date: 20230602
  Receipt Date: 20230602
  Transmission Date: 20230722
  Serious: Yes (Other)
  Sender: FDA-Public Use
  Company Number: IR-BoehringerIngelheim-2023-BI-239961

PATIENT
  Age: 23 Year
  Sex: Female

DRUGS (4)
  1. ALTEPLASE [Suspect]
     Active Substance: ALTEPLASE
     Indication: Prosthetic cardiac valve thrombosis
     Dosage: 25 MG ALTEPLASE OVER 25 HOURS OF INFUSION WITHOUT BOLUS ADMINISTRATION.
     Route: 040
  2. ALTEPLASE [Suspect]
     Active Substance: ALTEPLASE
     Dosage: THE SECOND DOSE OF 25 MG T-PA WAS STARTED FOR THE NEXT 25 HOURS.
     Route: 065
  3. HEPARIN [Concomitant]
     Active Substance: HEPARIN SODIUM
     Indication: Product used for unknown indication
     Route: 058
  4. HEPARIN [Concomitant]
     Active Substance: HEPARIN SODIUM
     Route: 042

REACTIONS (3)
  - Drug ineffective [Unknown]
  - Maternal exposure during pregnancy [Unknown]
  - No adverse event [Unknown]
